FAERS Safety Report 21968755 (Version 1)
Quarter: 2023Q1

REPORT INFORMATION
  Report Type: Spontaneous
  Country: GB (occurrence: GB)
  Receive Date: 20230208
  Receipt Date: 20230208
  Transmission Date: 20230417
  Serious: Yes (Disabling, Other)
  Sender: FDA-Public Use
  Company Number: GB-MHRA-MED-202301312235219940-QPCRK

PATIENT

DRUGS (1)
  1. BIMATOPROST\TIMOLOL MALEATE [Suspect]
     Active Substance: BIMATOPROST\TIMOLOL MALEATE
     Indication: Product used for unknown indication
     Dosage: UNK
     Dates: start: 20210516, end: 20230116

REACTIONS (1)
  - Muscular weakness [Not Recovered/Not Resolved]
